FAERS Safety Report 6743721-8 (Version None)
Quarter: 2010Q2

REPORT INFORMATION
  Report Type: 
  Country: None (occurrence: None)
  Receive Date: 20100526
  Receipt Date: 20100526
  Transmission Date: 20101027
  Serious: Yes (Disabling, Other)
  Sender: FDA-Public Use
  Company Number: None

PATIENT
  Sex: Male
  Weight: 86.1834 kg

DRUGS (1)
  1. ZICAM - ALLERGY RELIEF - GELSWABS [Suspect]
     Dosage: 20 TOTAL SWABS 1 EVERY 4 HRS DURING 2 OR 3 DAYS
     Dates: start: 20090101

REACTIONS (2)
  - AGEUSIA [None]
  - ANOSMIA [None]
